FAERS Safety Report 6150546-3 (Version None)
Quarter: 2009Q2

REPORT INFORMATION
  Report Type: 
  Country: None (occurrence: None)
  Receive Date: 20090409
  Receipt Date: 20090409
  Transmission Date: 20091009
  Serious: Yes (Life-Threatening)
  Sender: FDA-Public Use
  Company Number: PHHY2009DE13383

PATIENT
  Sex: Female

DRUGS (1)
  1. SEQUIDOT [Suspect]
     Indication: MENOPAUSAL SYMPTOMS
     Dosage: UNK
     Route: 062

REACTIONS (1)
  - APPARENT LIFE THREATENING EVENT [None]
